FAERS Safety Report 8244649-7 (Version None)
Quarter: 2012Q1

REPORT INFORMATION
  Report Type: 
  Country: None (occurrence: None)
  Receive Date: 20120329
  Receipt Date: 20111130
  Transmission Date: 20120608
  Serious: No
  Sender: FDA-Public Use
  Company Number: US-MYLANLABS-2011S1024874

PATIENT
  Age: 52 Year
  Sex: Female
  Weight: 54.43 kg

DRUGS (10)
  1. FENTANYL-100 [Suspect]
     Indication: INTERVERTEBRAL DISC DEGENERATION
     Dosage: CHANGED Q72H
     Route: 062
     Dates: start: 20111121, end: 20111124
  2. LISINOPRIL [Concomitant]
  3. ASPIRIN [Concomitant]
  4. ZOFRAN [Concomitant]
  5. TOPROL-XL [Concomitant]
  6. FENTANYL-100 [Suspect]
     Dosage: CHANGED Q72H
     Route: 062
     Dates: start: 20111118, end: 20111120
  7. XANAX [Concomitant]
  8. CARTIA XT [Concomitant]
  9. EFFIENT [Concomitant]
  10. DEXILANT [Concomitant]

REACTIONS (6)
  - VOMITING [None]
  - DYSURIA [None]
  - DIZZINESS [None]
  - PALPITATIONS [None]
  - OVERDOSE [None]
  - NAUSEA [None]
